FAERS Safety Report 24748048 (Version 1)
Quarter: 2024Q4

REPORT INFORMATION
  Report Type: Spontaneous
  Country: US (occurrence: US)
  Receive Date: 20241218
  Receipt Date: 20241218
  Transmission Date: 20250115
  Serious: Yes (Other)
  Sender: SANDOZ
  Company Number: US-SANDOZ-SDZ2024US102973

PATIENT
  Sex: Female
  Weight: 58.9 kg

DRUGS (16)
  1. BAYER ASPIRIN [Suspect]
     Active Substance: ASPIRIN
     Indication: Product used for unknown indication
     Dosage: TAKE 1 TABLET BY MOUTH ONCE DAILY.
     Route: 048
     Dates: start: 20240816
  2. FIORICET [Suspect]
     Active Substance: ACETAMINOPHEN\BUTALBITAL\CAFFEINE
     Indication: Product used for unknown indication
     Dosage: 1 TAB EVERY 8 HOURS PRN
     Route: 065
     Dates: start: 20240809, end: 20241113
  3. GABAPENTIN [Suspect]
     Active Substance: GABAPENTIN
     Indication: Product used for unknown indication
     Dosage: UNK
     Route: 065
  4. IRON [Suspect]
     Active Substance: IRON
     Indication: Product used for unknown indication
     Dosage: TAKE 2 EACH BY MOUTH ONCE DAILY. EACH GUMMIE CONTAINS 9MG OF IRON
     Route: 048
  5. KESIMPTA [Suspect]
     Active Substance: OFATUMUMAB
     Indication: Product used for unknown indication
     Dosage: INJECT 20 MG UNDER THE SKIN AS DIRECTED. 1 INJ SUBCUTANEOUS - WEEK 0, 1 AND 2. FROM WEEK 4 - EVERY 3
     Route: 058
     Dates: start: 20240809, end: 20241113
  6. MAGNESIUM OXIDE [Suspect]
     Active Substance: MAGNESIUM OXIDE
     Indication: Migraine prophylaxis
     Dosage: TAKE 1 TABLET BY MOUTH AT BEDTIME
     Route: 048
     Dates: start: 20240717
  7. MOTRIN [Suspect]
     Active Substance: IBUPROFEN
     Indication: Pain
     Dosage: TAKE 4 TABLETS BY MOUTH EVERY 6 HOURS
     Route: 048
  8. NICODERM CQ [Suspect]
     Active Substance: NICOTINE
     Indication: Product used for unknown indication
     Dosage: PLACE 1 PATCH ON THE SKIN EVERY 24 HOURS
     Route: 062
     Dates: start: 20241002
  9. PREGABALIN [Suspect]
     Active Substance: PREGABALIN
     Indication: Product used for unknown indication
     Dosage: TAKE 1 CAPSULE BY MOUTH TWICE DAILY
     Route: 048
     Dates: start: 20241002, end: 20241106
  10. TYLENOL [Suspect]
     Active Substance: ACETAMINOPHEN
     Indication: Pain
     Dosage: TAKE 1 TABLET BY MOUTH EVERY 6 HOURS AS NEEDED FOR PAIN
     Route: 048
  11. VITAMIN D3 [Suspect]
     Active Substance: CHOLECALCIFEROL
     Indication: Product used for unknown indication
     Dosage: TAKE 1 TABLET BY MOUTH ONCE DAILY
     Route: 048
  12. WELLBUTRIN SR [Suspect]
     Active Substance: BUPROPION HYDROCHLORIDE
     Indication: Product used for unknown indication
     Dosage: TAKE 1 PO DAILY X 1 WEEK; THEN 1 TABLET TWICE A DAY
     Route: 048
     Dates: start: 20241002, end: 20241211
  13. WELLBUTRIN SR [Suspect]
     Active Substance: BUPROPION HYDROCHLORIDE
     Dosage: TAKE 1 TABLET BY MOUTH TWICE DAILY - WITH BREAKFAST AND SUPPER. TAKE 1 PO DAILY X 1 WEEK; THEN 1 TAB
     Route: 065
  14. WELLBUTRIN XL [Suspect]
     Active Substance: BUPROPION HYDROCHLORIDE
     Indication: Product used for unknown indication
     Dosage: TAKE 1 TABLET BY MOUTH DAILY WITH BREAKFAST.
     Route: 048
     Dates: end: 20241113
  15. ZOFRAN [Suspect]
     Active Substance: ONDANSETRON HYDROCHLORIDE
     Indication: Product used for unknown indication
     Dosage: 1 TAB TWICE A DAY PRN NAUSEA. MAX 2 TABS A DAY
     Route: 065
     Dates: end: 20241113
  16. ZOMIG [Suspect]
     Active Substance: ZOLMITRIPTAN
     Indication: Product used for unknown indication
     Dosage: TAKE 1 TABLET BY MOUTH AS NEEDED FOR MIGRAINE. MAY REPEAT 1 TAB AFTER 2 HRS IF NEEDED. NOT TO TAKE M
     Route: 048
     Dates: start: 20240717

REACTIONS (13)
  - Multiple sclerosis [Unknown]
  - Pain [Unknown]
  - Feeling cold [Unknown]
  - Arthralgia [Unknown]
  - Influenza [Unknown]
  - Feeling abnormal [Unknown]
  - Hypoaesthesia [Unknown]
  - Paraesthesia [Recovered/Resolved]
  - Fatigue [Unknown]
  - Myoclonus [Recovered/Resolved]
  - Musculoskeletal discomfort [Unknown]
  - Feeling drunk [Unknown]
  - Headache [Recovered/Resolved]
